FAERS Safety Report 12163846 (Version 1)
Quarter: 2016Q1

REPORT INFORMATION
  Report Type: Spontaneous
  Country: US (occurrence: US)
  Receive Date: 20160309
  Receipt Date: 20160309
  Transmission Date: 20160526
  Serious: No
  Sender: FDA-Public Use
  Company Number: US-ROCHE-1608473

PATIENT
  Sex: Female

DRUGS (1)
  1. XOLAIR [Suspect]
     Active Substance: OMALIZUMAB
     Indication: URTICARIA
     Dosage: ONCE EVERY TWO WEEKS
     Route: 065
     Dates: start: 201505

REACTIONS (2)
  - Skin burning sensation [Not Recovered/Not Resolved]
  - Bone pain [Not Recovered/Not Resolved]
